FAERS Safety Report 19222388 (Version 2)
Quarter: 2021Q2

REPORT INFORMATION
  Report Type: Spontaneous
  Country: US (occurrence: US)
  Receive Date: 20210506
  Receipt Date: 20210610
  Transmission Date: 20210717
  Serious: Yes (Other)
  Sender: FDA-Public Use
  Company Number: US-SA-2021SA147979

PATIENT
  Age: 27 Year
  Sex: Female

DRUGS (1)
  1. DUPIXENT [Suspect]
     Active Substance: DUPILUMAB
     Indication: DERMATITIS ATOPIC
     Dosage: 300 MG, QOW
     Route: 058
     Dates: start: 202103

REACTIONS (7)
  - Nasal septum deviation [Unknown]
  - Hordeolum [Unknown]
  - Eye swelling [Unknown]
  - Dry eye [Unknown]
  - Myopia [Unknown]
  - Vision blurred [Unknown]
  - Eye pruritus [Unknown]

NARRATIVE: CASE EVENT DATE: 2021
